FAERS Safety Report 12871792 (Version 4)
Quarter: 2017Q3

REPORT INFORMATION
  Report Type: Spontaneous
  Country: US (occurrence: US)
  Receive Date: 20161021
  Receipt Date: 20170831
  Transmission Date: 20171127
  Serious: Yes (Other)
  Sender: FDA-Public Use
  Company Number: US-ALEXION PHARMACEUTICALS INC.-A201607917

PATIENT
  Sex: Female

DRUGS (3)
  1. STRENSIQ [Suspect]
     Active Substance: ASFOTASE ALFA
     Indication: HYPOPHOSPHATASIA
     Dosage: UNK UNK, TIW
     Route: 058
     Dates: start: 20160220
  2. CIPRODEX                           /00697202/ [Concomitant]
     Indication: CERUMEN REMOVAL
     Route: 065
  3. STRENSIQ [Suspect]
     Active Substance: ASFOTASE ALFA
     Dosage: UNK
     Route: 058
     Dates: start: 2016

REACTIONS (7)
  - Tympanic membrane perforation [Recovered/Resolved]
  - Catheter site haemorrhage [Recovered/Resolved]
  - Tympanic membrane disorder [Unknown]
  - Ear disorder [Unknown]
  - Hypoacusis [Unknown]
  - Conductive deafness [Unknown]
  - Middle ear effusion [Unknown]

NARRATIVE: CASE EVENT DATE: 2017
